FAERS Safety Report 5356534-9 (Version None)
Quarter: 2007Q2

REPORT INFORMATION
  Report Type: 
  Country: None (occurrence: None)
  Receive Date: 20070530
  Receipt Date: 20061211
  Transmission Date: 20071010
  Serious: Yes (Hospitalization)
  Sender: FDA-Public Use
  Company Number: US200608006713

PATIENT
  Age: 39 Year
  Sex: Female
  Weight: 102 kg

DRUGS (10)
  1. ZYPREXA [Suspect]
     Dates: start: 20020101, end: 20030101
  2. CLOZARIL [Concomitant]
  3. SEROQUEL [Concomitant]
  4. RISPERIDONE [Concomitant]
  5. PROZAC [Concomitant]
  6. REMERON [Concomitant]
  7. PAXIL [Concomitant]
  8. ZOLOFT [Concomitant]
  9. TENORMIN [Concomitant]
  10. LOPRESSOR [Concomitant]

REACTIONS (3)
  - DIABETES MELLITUS [None]
  - DIABETIC KETOACIDOSIS [None]
  - METABOLIC DISORDER [None]
